FAERS Safety Report 5316356-1 (Version None)
Quarter: 2007Q2

REPORT INFORMATION
  Report Type: 
  Country: None (occurrence: None)
  Receive Date: 20070430
  Receipt Date: 20070424
  Transmission Date: 20071010
  Serious: Yes (Other)
  Sender: FDA-Public Use
  Company Number: 0704-304

PATIENT
  Age: 16 Year
  Sex: Female

DRUGS (1)
  1. ALBUTEROL SULATE [Suspect]

REACTIONS (2)
  - LACTIC ACIDOSIS [None]
  - NASOPHARYNGITIS [None]
